FAERS Safety Report 9536716 (Version 1)
Quarter: 2013Q3

REPORT INFORMATION
  Report Type: Spontaneous
  Country: US (occurrence: None)
  Receive Date: 20130918
  Receipt Date: 20130918
  Transmission Date: 20140515
  Serious: Yes (Hospitalization)
  Sender: FDA-Public Use
  Company Number: None

PATIENT
  Age: 69 Year
  Sex: Male
  Weight: 75.9 kg

DRUGS (1)
  1. PAMIDRONATE [Suspect]
     Indication: HYPERCALCAEMIA OF MALIGNANCY
     Dosage: 60 MG OTHER FREQUENCY IV
     Route: 042
     Dates: start: 20100625, end: 20130724

REACTIONS (1)
  - Osteonecrosis of jaw [None]
